FAERS Safety Report 21554992 (Version 1)
Quarter: 2022Q4

REPORT INFORMATION
  Report Type: Spontaneous
  Country: US (occurrence: US)
  Receive Date: 20221104
  Receipt Date: 20221104
  Transmission Date: 20230112
  Serious: Yes (Hospitalization)
  Sender: FDA-Public Use
  Company Number: US-MYLANLABS-2022M1120694

PATIENT
  Age: 52 Year
  Sex: Female

DRUGS (4)
  1. LETROZOLE [Suspect]
     Active Substance: LETROZOLE
     Indication: Invasive ductal breast carcinoma
     Dosage: UNK UNK, QD
     Route: 065
  2. LETROZOLE [Suspect]
     Active Substance: LETROZOLE
     Indication: Hormone receptor positive HER2 negative breast cancer
  3. GOSERELIN [Suspect]
     Active Substance: GOSERELIN
     Indication: Invasive ductal breast carcinoma
     Dosage: UNK UNK, QD
     Route: 065
  4. GOSERELIN [Suspect]
     Active Substance: GOSERELIN
     Indication: Hormone receptor positive HER2 negative breast cancer

REACTIONS (2)
  - Drug ineffective [Unknown]
  - Metastasis [Unknown]
